FAERS Safety Report 7439612-X (Version None)
Quarter: 2011Q2

REPORT INFORMATION
  Report Type: 
  Country: None (occurrence: None)
  Receive Date: 20110427
  Receipt Date: 20110314
  Transmission Date: 20111010
  Serious: Yes (Death)
  Sender: FDA-Public Use
  Company Number: FR-AMGEN-FRASP2010008540

PATIENT
  Age: 36 Year
  Sex: Male

DRUGS (4)
  1. NOVATREX                           /00113801/ [Suspect]
     Indication: PSORIASIS
     Dosage: 20 MG, QWK
  2. ENBREL [Suspect]
     Indication: PSORIASIS
     Dosage: 50 MG, 2X/WEEK
     Dates: start: 20070301, end: 20070101
  3. NOVATREX                           /00113801/ [Suspect]
     Dosage: 25 MG, QWK
  4. NEORAL [Suspect]
     Indication: PSORIASIS
     Dosage: 3 MG/KG, 1X/DAY
     Dates: start: 20070701, end: 20070101

REACTIONS (2)
  - DRUG INEFFECTIVE [None]
  - MYCOSIS FUNGOIDES STAGE IV [None]
